FAERS Safety Report 26211340 (Version 1)
Quarter: 2025Q4

REPORT INFORMATION
  Report Type: Spontaneous
  Country: CN (occurrence: CN)
  Receive Date: 20251230
  Receipt Date: 20251230
  Transmission Date: 20260118
  Serious: Yes (Other)
  Sender: BAXTER
  Company Number: None

PATIENT
  Age: 45 Year
  Sex: Female
  Weight: 67 kg

DRUGS (4)
  1. CYCLOPHOSPHAMIDE [Suspect]
     Active Substance: CYCLOPHOSPHAMIDE
     Indication: Breast cancer female
     Dosage: 1 G, QD
     Route: 041
     Dates: start: 20251126, end: 20251126
  2. SODIUM CHLORIDE [Suspect]
     Active Substance: SODIUM CHLORIDE
     Indication: Medication dilution
     Dosage: QD, WITH CYCLOPHOSPHAMIDE
     Route: 041
     Dates: start: 20251126, end: 20251126
  3. DEXTROSE [Suspect]
     Active Substance: DEXTROSE MONOHYDRATE
     Indication: Medication dilution
     Dosage: 500 ML, QD WITH DOXORUBICIN
     Route: 041
     Dates: start: 20251126, end: 20251126
  4. DOXORUBICIN HYDROCHLORIDE [Suspect]
     Active Substance: DOXORUBICIN HYDROCHLORIDE
     Indication: Breast cancer female
     Dosage: 58 MG, QD, PREPARED BY SELF
     Route: 041
     Dates: start: 20251126, end: 20251126

REACTIONS (1)
  - Myelosuppression [Recovered/Resolved]

NARRATIVE: CASE EVENT DATE: 20251215
